FAERS Safety Report 6361875-2 (Version None)
Quarter: 2009Q3

REPORT INFORMATION
  Report Type: 
  Country: None (occurrence: None)
  Receive Date: 20090918
  Receipt Date: 20090915
  Transmission Date: 20100115
  Serious: Yes (Death, Hospitalization)
  Sender: FDA-Public Use
  Company Number: NL-ROCHE-626098

PATIENT
  Weight: 57 kg

DRUGS (13)
  1. CAPECITABINE [Suspect]
     Indication: GASTRIC CANCER
     Dosage: DOSE AND FREQUENCY PER PROTOCOL: GIVEN ON DAYS 1-14 EVERY 3 WEEKS
     Route: 048
     Dates: start: 20090312, end: 20090401
  2. CAPECITABINE [Suspect]
     Dosage: DOSE AND FREQUENCY PER PROTOCOL: GIVEN ON DAYS 1-14 EVERY 3 WEEKS
     Route: 048
     Dates: start: 20090402, end: 20090412
  3. EPIRUBICIN [Suspect]
     Indication: GASTRIC CANCER
     Dosage: DOSE AND FREQUENCY PER PROTOCOL: GIVEN ON DAY 1 OF EVERY 3 WEEKS
     Route: 042
     Dates: start: 20090312, end: 20090401
  4. EPIRUBICIN [Suspect]
     Dosage: DOSE AND FREQUENCY PER PROTOCOL: GIVEN ON DAY 1 OF EVERY 3 WEEKS
     Route: 042
     Dates: start: 20090402, end: 20090412
  5. CISPLATIN [Suspect]
     Indication: GASTRIC CANCER
     Dosage: DOSE AND FREQUENCY PER PROTOCOL: GIVEN ON DAY 1 OF EVERY 3 WEEKS.
     Route: 042
     Dates: start: 20090312, end: 20090401
  6. CISPLATIN [Suspect]
     Dosage: DOSE AND FREQUENCY PER PROTOCOL: GIVEN ON DAY 1 OF EVERY 3 WEEKS.
     Route: 042
     Dates: start: 20090402, end: 20090412
  7. METOCLOPRAMIDE [Concomitant]
     Route: 048
     Dates: start: 20090402
  8. METOCLOPRAMIDE [Concomitant]
     Dosage: DRUG NAME REPORTED: METOCLOPROMIDE 10 MG (WHEN NECESSARY)
     Route: 048
     Dates: start: 20090410
  9. EMEND [Concomitant]
     Route: 048
     Dates: start: 20090402, end: 20090406
  10. DEXAMETASON [Concomitant]
     Dosage: REPORTED ROUTE: ORAL/IV REPORTED DOSE ILLEGIBLE
     Dates: start: 20090402, end: 20090406
  11. OMEPRAZOL [Concomitant]
     Dosage: DRUG REPORTED: OMEPRAZOL 40 MG  1X1, STARTED AT HOME
     Route: 048
  12. AUGMENTIN [Concomitant]
     Dosage: DRUG REPORTED: AUGMENTIN 200
     Dates: start: 20090411
  13. AMOXICILLIN [Concomitant]
     Dosage: DRUG NAME REPORTED: AMOXYCILLINE/CLAVULANIC ACID
     Route: 042
     Dates: start: 20090410, end: 20090411

REACTIONS (4)
  - GASTROINTESTINAL DISORDER [None]
  - ILEUS [None]
  - PYREXIA [None]
  - VOMITING [None]
